FAERS Safety Report 8054821-7 (Version None)
Quarter: 2012Q1

REPORT INFORMATION
  Report Type: 
  Country: None (occurrence: None)
  Receive Date: 20120112
  Receipt Date: 20111229
  Transmission Date: 20120608
  Serious: Yes (Hospitalization)
  Sender: FDA-Public Use
  Company Number: 2012PT0009

PATIENT
  Age: 9 Year
  Sex: Male
  Weight: 54.5 kg

DRUGS (1)
  1. ORFADIN [Suspect]
     Indication: TYROSINAEMIA
     Dates: start: 20010331, end: 20100101

REACTIONS (2)
  - HEPATIC NEOPLASM [None]
  - LIVER TRANSPLANT [None]
